FAERS Safety Report 5445716-3 (Version None)
Quarter: 2007Q3

REPORT INFORMATION
  Report Type: 
  Country: None (occurrence: None)
  Receive Date: 20070904
  Receipt Date: 20070821
  Transmission Date: 20080115
  Serious: Yes (Death, Hospitalization)
  Sender: FDA-Public Use
  Company Number: 160456USA

PATIENT
  Age: 64 Year

DRUGS (3)
  1. FLUOROURACIL [Suspect]
     Indication: COLON CANCER
     Dosage: (5600 MG), INTRAVENOUS
     Route: 042
     Dates: start: 20070612, end: 20070614
  2. FOLINIC ACID [Suspect]
     Indication: COLON CANCER
     Dosage: (800 MG), INTRAVENOUS
     Route: 042
     Dates: start: 20070612, end: 20070612
  3. OXALIPLATIN [Suspect]
     Indication: COLON CANCER
     Dosage: (185 MG), INTRAVENOUS
     Route: 042
     Dates: start: 20070612, end: 20070612

REACTIONS (9)
  - ACUTE RESPIRATORY DISTRESS SYNDROME [None]
  - DIFFUSE ALVEOLAR DAMAGE [None]
  - DRUG INEFFECTIVE [None]
  - EYE INJURY [None]
  - EYE PENETRATION [None]
  - FALL [None]
  - PULMONARY CONGESTION [None]
  - PULMONARY FIBROSIS [None]
  - RESPIRATORY FAILURE [None]
